FAERS Safety Report 8236053-2 (Version None)
Quarter: 2012Q1

REPORT INFORMATION
  Report Type: 
  Country: None (occurrence: None)
  Receive Date: 20120326
  Receipt Date: 20120307
  Transmission Date: 20120608
  Serious: Yes (Other)
  Sender: FDA-Public Use
  Company Number: JP-ASTRAZENECA-2012SE19127

PATIENT
  Sex: Female
  Weight: 58 kg

DRUGS (13)
  1. LANSOPRAZOLE [Suspect]
     Indication: PROPHYLAXIS
     Route: 048
     Dates: start: 20100926
  2. PLAVIX [Suspect]
     Indication: THROMBOSIS PROPHYLAXIS
     Route: 048
     Dates: start: 20100926
  3. TORSEMIDE [Concomitant]
     Indication: ACUTE MYOCARDIAL INFARCTION
     Route: 048
     Dates: start: 20101002, end: 20110908
  4. LIPITOR [Suspect]
     Indication: LIPID METABOLISM DISORDER
     Route: 048
     Dates: start: 20100926
  5. MERISLON [Concomitant]
     Indication: DIZZINESS
     Route: 048
     Dates: start: 20101029, end: 20110825
  6. NATEGLINIDE [Concomitant]
     Indication: TYPE 2 DIABETES MELLITUS
     Route: 048
     Dates: start: 20100928, end: 20110825
  7. GLUCOBAY [Concomitant]
     Indication: TYPE 2 DIABETES MELLITUS
     Route: 048
     Dates: start: 20101002
  8. CANDESARTAN CILEXETIL [Suspect]
     Indication: HYPERTENSION
     Route: 048
     Dates: start: 20101008
  9. SYR-322 CODE NOT BROKEN [Suspect]
     Dates: start: 20110302, end: 20110831
  10. MAGMITT [Concomitant]
     Indication: CONSTIPATION
     Route: 048
     Dates: start: 20101004
  11. SYR-322 CODE NOT BROKEN [Suspect]
     Indication: TYPE 2 DIABETES MELLITUS
     Route: 048
     Dates: start: 20101126, end: 20101201
  12. ASPIRIN [Concomitant]
     Indication: THROMBOSIS PROPHYLAXIS
     Route: 048
     Dates: start: 20100926
  13. CARVEDILOL [Concomitant]
     Indication: HYPERTENSION
     Route: 048
     Dates: start: 20101005

REACTIONS (1)
  - INTERSTITIAL LUNG DISEASE [None]
